FAERS Safety Report 5068304-X (Version None)
Quarter: 2006Q3

REPORT INFORMATION
  Report Type: 
  Country: None (occurrence: None)
  Receive Date: 20060802
  Receipt Date: 20050722
  Transmission Date: 20061208
  Serious: Yes (Other)
  Sender: FDA-Public Use
  Company Number: US-BRISTOL-MYERS SQUIBB COMPANY-13048236

PATIENT
  Age: 70 Year
  Sex: Female
  Weight: 52 kg

DRUGS (5)
  1. COUMADIN [Suspect]
     Indication: ATRIAL FIBRILLATION
     Dosage: STARTED ON 3MG + GRADUALLY INCREASED TO 10MG
     Route: 048
     Dates: start: 20040101, end: 20050720
  2. VITAMIN B-12 [Concomitant]
  3. MULTI-VITAMIN [Concomitant]
  4. TOPROL-XL [Concomitant]
     Dosage: DISCONTINUED WITHOUT DOCTOR RECOMMENDATION.
  5. KETOPROFEN [Concomitant]
     Dosage: DISCONTINUED WITHOUT DOCTOR RECOMMENDATION.

REACTIONS (6)
  - ASTHENIA [None]
  - CONTUSION [None]
  - EPISTAXIS [None]
  - FAECES DISCOLOURED [None]
  - FATIGUE [None]
  - HAEMORRHAGE [None]
